FAERS Safety Report 9864022 (Version 2)
Quarter: 2014Q1

REPORT INFORMATION
  Report Type: Spontaneous
  Country: US (occurrence: US)
  Receive Date: 20140203
  Receipt Date: 20140307
  Transmission Date: 20141002
  Serious: No
  Sender: FDA-Public Use
  Company Number: US-AMGEN-USASP2014003074

PATIENT
  Age: 44 Year
  Sex: Female
  Weight: 68.03 kg

DRUGS (2)
  1. ENBREL [Suspect]
     Indication: RHEUMATOID ARTHRITIS
     Dosage: 50 MG, QWK
     Route: 058
     Dates: start: 20090623, end: 20090925
  2. ADVIL                              /00044201/ [Concomitant]
     Dosage: 200 MG, UNK

REACTIONS (3)
  - Drug hypersensitivity [Unknown]
  - Drug ineffective [Recovered/Resolved]
  - Abdominal discomfort [Recovered/Resolved]
